FAERS Safety Report 24731904 (Version 1)
Quarter: 2024Q4

REPORT INFORMATION
  Report Type: Spontaneous
  Country: US (occurrence: None)
  Receive Date: 20241213
  Receipt Date: 20241213
  Transmission Date: 20250114
  Serious: Yes (Life-Threatening, Disabling, Other)
  Sender: Public
  Company Number: None

PATIENT
  Age: 54 Year
  Sex: Female
  Weight: 76.5 kg

DRUGS (2)
  1. ANASTROZOLE [Suspect]
     Active Substance: ANASTROZOLE
     Indication: Breast cancer
     Dosage: 1 TABLET DAILY ORAL ?
     Route: 048
     Dates: start: 20241016, end: 20241020
  2. LETROZOLE [Suspect]
     Active Substance: LETROZOLE
     Indication: Breast cancer
     Dosage: 1 TABLET DAILY ORAL ?
     Route: 048
     Dates: start: 20241024, end: 20241029

REACTIONS (6)
  - Distractibility [None]
  - Suicidal ideation [None]
  - Pain [None]
  - Hypoaesthesia [None]
  - Hyperhidrosis [None]
  - Emotional disorder [None]

NARRATIVE: CASE EVENT DATE: 20241019
